FAERS Safety Report 16108349 (Version 2)
Quarter: 2019Q2

REPORT INFORMATION
  Report Type: Spontaneous
  Country: FR (occurrence: FR)
  Receive Date: 20190322
  Receipt Date: 20190417
  Transmission Date: 20190711
  Serious: No
  Sender: FDA-Public Use
  Company Number: FR-MYLANLABS-2019M1027326

PATIENT
  Age: 15 Year
  Sex: Female
  Weight: 70 kg

DRUGS (1)
  1. DYMISTA [Suspect]
     Active Substance: AZELASTINE HYDROCHLORIDE\FLUTICASONE PROPIONATE
     Indication: RHINITIS ALLERGIC
     Dosage: 1 QD
     Route: 045

REACTIONS (1)
  - Nasal discomfort [Recovered/Resolved]
